FAERS Safety Report 8576891-X (Version None)
Quarter: 2012Q3

REPORT INFORMATION
  Report Type: 
  Country: None (occurrence: None)
  Receive Date: 20120725
  Receipt Date: 20120710
  Transmission Date: 20120928
  Serious: Yes (Hospitalization)
  Sender: FDA-Public Use
  Company Number: NSR_00587_2012

PATIENT
  Age: 32 Year
  Sex: Male

DRUGS (3)
  1. SALICYLAZOSULFAPYRIDINE [Concomitant]
  2. LEFLUNOMIDE [Suspect]
     Indication: ANKYLOSING SPONDYLITIS
     Dosage: (20 MG, QD ORAL), (10 MG, QD ORAL)
     Route: 048
  3. DICLOFENAC SODIUM [Concomitant]

REACTIONS (1)
  - LYMPH NODE TUBERCULOSIS [None]
